FAERS Safety Report 6434079-2 (Version None)
Quarter: 2009Q4

REPORT INFORMATION
  Report Type: 
  Country: None (occurrence: None)
  Receive Date: 20091110
  Receipt Date: 20090204
  Transmission Date: 20100525
  Serious: No
  Sender: FDA-Public Use
  Company Number: US-ASTRAZENECA-2009SE04790

PATIENT

DRUGS (1)
  1. PRILOSEC OTC [Suspect]
     Dosage: UNK DOSE, UNK FREQ FOR 32 DAYS
     Route: 048
     Dates: start: 20090101, end: 20090202

REACTIONS (2)
  - INCORRECT DRUG ADMINISTRATION DURATION [None]
  - NIGHT SWEATS [None]
